FAERS Safety Report 6127276-7 (Version None)
Quarter: 2009Q1

REPORT INFORMATION
  Report Type: 
  Country: None (occurrence: None)
  Receive Date: 20090319
  Receipt Date: 20090305
  Transmission Date: 20090719
  Serious: Yes (Hospitalization)
  Sender: FDA-Public Use
  Company Number: 02100-JPN-06-0412

PATIENT
  Age: 81 Year
  Sex: Female

DRUGS (26)
  1. PLAVIX [Suspect]
     Indication: CEREBRAL ARTERY STENOSIS
     Dosage: 75 MG, DAILY DOSE ORAL
     Route: 048
     Dates: start: 20060619, end: 20070109
  2. GLIMEPIRIDE [Suspect]
     Indication: DIABETES MELLITUS
     Dosage: 4 MG, DAILY DOSE ORAL
     Route: 048
     Dates: start: 20060713, end: 20060823
  3. GLIMEPIRIDE [Suspect]
     Indication: DIABETES MELLITUS
     Dosage: 4 MG, DAILY DOSE ORAL
     Route: 048
     Dates: start: 20060824
  4. AVANDIA [Suspect]
     Indication: DIABETES MELLITUS
     Dosage: 4 MG, DAILY DOSE; ORAL
     Route: 048
     Dates: start: 20060713, end: 20060823
  5. AVANDIA [Suspect]
     Indication: DIABETES MELLITUS
     Dosage: 4 MG, DAILY DOSE; ORAL
     Route: 048
     Dates: start: 20060824
  6. ASPIRIN [Concomitant]
  7. DOMPERIDONE MALEATE (DOMPERIDONE MALEATE) UNKNOWN [Concomitant]
  8. ALFUZOSIN (ALFUZOSIN) UNKNOWN [Concomitant]
  9. GLIMEPIRIDE (GLIMEPIRIDE) UNKNOWN [Concomitant]
  10. GALANTAMINE HYDROBROMIDE (GALANTAMINE HYDROBROMIDE) UNKNOWN [Concomitant]
  11. SODIUM VALPROATE (SODIUM VALPROATE) UNKNOWN [Concomitant]
  12. ROSIGLITAZONE [Concomitant]
  13. PAROXETINE HYDROCHLORIDE (PAROXETINE HYDROCHLORIDE) UNKNOWN [Concomitant]
  14. MAGNESIUM OXIDE (MAGNESIUM OXIDE) UNKNOWN [Concomitant]
  15. STILLEN (MADE BY DONGA) (STILLEN (MADE BY DONGA)) UNKNOWN [Concomitant]
  16. CIMETIDINE (CIMETIDINE) UNKNOWN [Concomitant]
  17. DRIED FERROUS SULFATE (DRIED FERROUS SULFATE) UNKNOWN [Concomitant]
  18. AZELASTINE (AZELASTINE) UNKNOWN [Concomitant]
  19. HYDROXIZINE HYDROCHLORIDE (HYDROXIZINE HYDROCHLORIDE) UNKNOWN [Concomitant]
  20. CEFTRIAXONE SODIUM (CEFTRIAXONE SODIUM) UNKNOWN [Concomitant]
  21. BENZYDAMINE HYDROCHLORIDE (BENZYDAMINE HYDROCHLORIDE) UNKNOWN [Concomitant]
  22. SMECTA (MADE BY DAEWOONG) (SMECTA (MADE BY DAEWOONG)) UNKNOWN [Concomitant]
  23. INSULIN LISPRO (INSULIN LISPRO) UNKNOWN [Concomitant]
  24. DEXTROSE, NACL, KCI (DEXTROSE, NACL, KCI) UNKNOWN [Concomitant]
  25. REGULAR INSULIN (REGULAR INSULIN) UNKNOWN [Concomitant]
  26. LORAZEPAM [Concomitant]

REACTIONS (3)
  - HYPOGLYCAEMIA [None]
  - HYPOPHAGIA [None]
  - PYREXIA [None]
